FAERS Safety Report 8928087 (Version 3)
Quarter: 2013Q1

REPORT INFORMATION
  Report Type: Spontaneous
  Country: JP (occurrence: None)
  Receive Date: 20121120
  Receipt Date: 20121204
  Transmission Date: 20140127
  Serious: Yes (Hospitalization)
  Sender: FDA-Public Use
  Company Number: TPA2012A09132

PATIENT
  Age: 76 Year
  Sex: Female

DRUGS (8)
  1. FEBURIC (FEBUXOSTAT) [Suspect]
     Indication: HYPERURICAEMIA
     Dosage: 10 MG (10 MG, 1 IN 1 D)
     Route: 048
     Dates: start: 20121001
  2. BONALON (ALENDRONATE SODIUM) [Concomitant]
     Route: 048
  3. ASPARA-CA (ASPARTATE CALCIUM) [Concomitant]
     Route: 048
  4. FUROSEMIDE (FUROSEMIDE) [Concomitant]
  5. ALDACTONE A (SPIRONOLACTONE) [Concomitant]
  6. APLACE (TROXIPIDE) [Concomitant]
  7. NIKORANMART (NICORANDIL) [Concomitant]
  8. ALLELOCK (OLOPATADINE HYDROCHLORIDE) [Concomitant]

REACTIONS (3)
  - Interstitial lung disease [None]
  - Urticaria [None]
  - Pruritus [None]
